FAERS Safety Report 13367330 (Version 2)
Quarter: 2024Q4

REPORT INFORMATION
  Report Type: Spontaneous
  Country: NL (occurrence: NL)
  Receive Date: 20170324
  Receipt Date: 20241202
  Transmission Date: 20250115
  Serious: Yes (Other)
  Sender: BRISTOL-MYERS SQUIBB COMPANY
  Company Number: NL-BRISTOL-MYERS SQUIBB COMPANY-BMS-2017-024654

PATIENT
  Age: 61 Year
  Sex: Female

DRUGS (1)
  1. IPILIMUMAB [Suspect]
     Active Substance: IPILIMUMAB
     Indication: Metastatic malignant melanoma

REACTIONS (2)
  - Foreign body reaction [Recovered/Resolved]
  - Skin lesion removal [Unknown]
